FAERS Safety Report 6527719-0 (Version None)
Quarter: 2010Q1

REPORT INFORMATION
  Report Type: 
  Country: None (occurrence: None)
  Receive Date: 20100106
  Receipt Date: 20091230
  Transmission Date: 20100710
  Serious: Yes (Death, Other)
  Sender: FDA-Public Use
  Company Number: US-BIOGENIDEC-2006BI005135

PATIENT
  Age: 55 Year
  Sex: Female

DRUGS (2)
  1. AVONEX [Suspect]
     Indication: MULTIPLE SCLEROSIS
     Route: 030
     Dates: start: 20020501
  2. AVONEX [Suspect]
     Route: 030
     Dates: end: 20060419

REACTIONS (3)
  - BREAST CANCER [None]
  - BREAST CANCER METASTATIC [None]
  - DEATH [None]
